FAERS Safety Report 4975513-4 (Version None)
Quarter: 2006Q2

REPORT INFORMATION
  Report Type: 
  Country: None (occurrence: None)
  Receive Date: 20060410
  Receipt Date: 20060328
  Transmission Date: 20061013
  Serious: Yes (Other)
  Sender: FDA-Public Use
  Company Number: CA200603006834

PATIENT
  Sex: Female

DRUGS (1)
  1. GEMCITABINE HYDROCHLORIDE (GEMCITABINE HYDROCHLORIDE UNKNOWN FORMULATI [Suspect]
     Dosage: INTRAVENOUS
     Route: 042

REACTIONS (4)
  - BLOOD PRESSURE INCREASED [None]
  - CHILLS [None]
  - LOSS OF CONSCIOUSNESS [None]
  - PYREXIA [None]
